FAERS Safety Report 9177862 (Version 2)
Quarter: 2012Q4

REPORT INFORMATION
  Report Type: 
  Country: US (occurrence: US)
  Receive Date: 20121011
  Receipt Date: 20121108
  Transmission Date: 20130627
  Serious: Yes (Hospitalization, Other)
  Sender: FDA-Public Use
  Company Number: US-RB-041523-12

PATIENT
  Age: 24 None
  Sex: Female

DRUGS (3)
  1. SUBUTEX [Suspect]
     Indication: DRUG DEPENDENCE
     Dosage: Dosing details unknown
     Route: 060
     Dates: start: 201206, end: 201207
  2. SUBOXONE FILM [Suspect]
     Indication: DRUG DEPENDENCE
     Dosage: Suboxone film; dosing details unknown
     Route: 060
     Dates: end: 201206
  3. PRENATAL VITAMINS [Concomitant]
     Indication: PREGNANCY
     Dosage: Dosing details unknown
     Route: 065
     Dates: start: 2012, end: 201209

REACTIONS (11)
  - Premature delivery [Recovered/Resolved]
  - Appendicitis perforated [Recovered/Resolved]
  - Kidney infection [Not Recovered/Not Resolved]
  - Anaemia of pregnancy [Not Recovered/Not Resolved]
  - Appendix disorder [Recovered/Resolved]
  - Chest pain [Recovered/Resolved]
  - Infection [Recovered/Resolved]
  - Urinary tract infection [Recovered/Resolved]
  - Back pain [Recovering/Resolving]
  - Procedural pain [Recovered/Resolved]
  - Exposure during pregnancy [Recovered/Resolved]
